FAERS Safety Report 4391795-4 (Version None)
Quarter: 2004Q2

REPORT INFORMATION
  Report Type: 
  Country: None (occurrence: None)
  Receive Date: 20040621
  Receipt Date: 20010611
  Transmission Date: 20050107
  Serious: Yes (Hospitalization)
  Sender: FDA-Public Use
  Company Number: KII-2001-0007867

PATIENT
  Sex: Male

DRUGS (2)
  1. OXYCONTIN [Suspect]
     Indication: CANCER PAIN
     Dosage: 20 MG
  2. COLACE [Concomitant]

REACTIONS (2)
  - CONSTIPATION [None]
  - SEDATION [None]
